FAERS Safety Report 21453456 (Version 5)
Quarter: 2022Q4

REPORT INFORMATION
  Report Type: Spontaneous
  Country: HR (occurrence: HR)
  Receive Date: 20221013
  Receipt Date: 20221115
  Transmission Date: 20230113
  Serious: Yes (Hospitalization, Other)
  Sender: FDA-Public Use
  Company Number: HR-002147023-NVSC2022HR216451

PATIENT
  Age: 53 Year
  Sex: Male

DRUGS (20)
  1. ATORVASTATIN CALCIUM [Suspect]
     Active Substance: ATORVASTATIN CALCIUM
     Dosage: 40 MILLIGRAM
     Route: 065
  2. ATORVASTATIN CALCIUM [Suspect]
     Active Substance: ATORVASTATIN CALCIUM
     Dosage: 80 MILLIGRAM, QD (QD0)
     Route: 065
  3. PANTOPRAZOLE [Suspect]
     Active Substance: PANTOPRAZOLE
     Dosage: 40 MILLIGRAM, QD
     Route: 065
  4. METFORMIN [Suspect]
     Active Substance: METFORMIN HYDROCHLORIDE
     Dosage: 1000 MILLIGRAM, QD(IN THE EVENING)
     Route: 065
  5. FUROSEMIDE [Suspect]
     Active Substance: FUROSEMIDE
     Dosage: 40 MILLIGRAM, QD
     Route: 065
  6. BISOPROLOL [Suspect]
     Active Substance: BISOPROLOL
     Dosage: 5 MILLIGRAM, QD
     Route: 065
  7. ENTRESTO [Suspect]
     Active Substance: SACUBITRIL\VALSARTAN
     Dosage: 1 DOSAGE FORM, BID (49/51 MG)
     Route: 065
     Dates: start: 2022
  8. ENTRESTO [Suspect]
     Active Substance: SACUBITRIL\VALSARTAN
     Dosage: 2 DOSAGE FORM, QD (97/103 MG)
     Route: 065
     Dates: start: 202201, end: 2022
  9. AMIODARONE HYDROCHLORIDE [Concomitant]
     Active Substance: AMIODARONE HYDROCHLORIDE
     Dosage: 200 MILLIGRAM
     Route: 065
  10. CLOPIDOGREL [Concomitant]
     Active Substance: CLOPIDOGREL BISULFATE
     Dosage: 75 MG, 1X/DAY (75 MILLIGRAM, QD)
     Route: 065
  11. CLOPIDOGREL/ROSUVASTATIN CALCIUM [Concomitant]
     Dosage: 75 MG, 1X/DAY (75 MILLIGRAM, QD)
     Route: 065
  12. APIXABAN [Concomitant]
     Active Substance: APIXABAN
     Dosage: 10 MG, 1X/DAY (10 MILLIGRAM, QD)
     Route: 065
  13. LIRAGLUTIDE [Concomitant]
     Active Substance: LIRAGLUTIDE
     Dosage: UNK
     Route: 065
  14. ASPIRIN [Concomitant]
     Active Substance: ASPIRIN
     Dosage: 100 MG, 1X/DAY (100 MILLIGRAM, QD)
     Route: 065
  15. EMPAGLIFLOZIN\METFORMIN HYDROCHLORIDE [Concomitant]
     Active Substance: EMPAGLIFLOZIN\METFORMIN HYDROCHLORIDE
     Dosage: UNK, 1X/DAY (12.5/ 1000 MILLIGRAM, QD)
     Route: 065
  16. EPLERENONE [Concomitant]
     Active Substance: EPLERENONE
     Dosage: 25 MG, 1X/DAY (25 MILLIGRAM, QD)
     Route: 065
  17. RAMIPRIL/VALSARTAN [Concomitant]
     Dosage: 5 MG, 1X/DAY (5 MILLIGRAM, QD)
     Route: 065
  18. RAMIPRIL/VALSARTAN [Concomitant]
     Dosage: 10 MG, 1X/DAY (10 MILLIGRAM, QD)
     Route: 065
  19. RAMIPRIL [Concomitant]
     Active Substance: RAMIPRIL
     Dosage: 5 MG, 1X/DAY (5 MILLIGRAM, QD)
     Route: 065
  20. RAMIPRIL [Concomitant]
     Active Substance: RAMIPRIL
     Dosage: 10 MG, 1X/DAY (10 MILLIGRAM, QD)
     Route: 065

REACTIONS (11)
  - Dyspnoea exertional [Not Recovered/Not Resolved]
  - Bundle branch block left [Unknown]
  - Blood pressure decreased [Unknown]
  - Dizziness postural [Unknown]
  - Nocturnal dyspnoea [Recovered/Resolved]
  - N-terminal prohormone brain natriuretic peptide increased [Unknown]
  - Blood pressure systolic increased [Unknown]
  - Cardiomegaly [Unknown]
  - Effusion [Unknown]
  - Ejection fraction decreased [Unknown]
  - Oedema peripheral [Unknown]

NARRATIVE: CASE EVENT DATE: 20220101
